FAERS Safety Report 11271658 (Version 1)
Quarter: 2015Q3

REPORT INFORMATION
  Report Type: Spontaneous
  Country: US (occurrence: US)
  Receive Date: 20150715
  Receipt Date: 20150715
  Transmission Date: 20151125
  Serious: Yes (Death, Other)
  Sender: FDA-Public Use
  Company Number: US-ROCHE-1608192

PATIENT
  Age: 85 Year
  Sex: Male

DRUGS (1)
  1. RITUXAN [Suspect]
     Active Substance: RITUXIMAB
     Indication: LEUKAEMIA
     Route: 042
     Dates: start: 20150202, end: 20150415

REACTIONS (1)
  - Death [Fatal]

NARRATIVE: CASE EVENT DATE: 20150626
